FAERS Safety Report 16825181 (Version 2)
Quarter: 2019Q3

REPORT INFORMATION
  Report Type: Spontaneous
  Country: DE (occurrence: DE)
  Receive Date: 20190919
  Receipt Date: 20190920
  Transmission Date: 20191005
  Serious: Yes (Other)
  Sender: FDA-Public Use
  Company Number: PHHY2019DE216037

PATIENT
  Age: 73 Year
  Sex: Male
  Weight: 92 kg

DRUGS (1)
  1. HYDROCHLOROTHIAZIDE. [Suspect]
     Active Substance: HYDROCHLOROTHIAZIDE
     Indication: PRODUCT USED FOR UNKNOWN INDICATION
     Dosage: 25 MG, UNK
     Route: 048
     Dates: start: 20180710

REACTIONS (1)
  - Squamous cell carcinoma of skin [Unknown]

NARRATIVE: CASE EVENT DATE: 20190705
